FAERS Safety Report 24071411 (Version 1)
Quarter: 2024Q3

REPORT INFORMATION
  Report Type: Report from Study
  Country: DE (occurrence: DE)
  Receive Date: 20240710
  Receipt Date: 20240710
  Transmission Date: 20241017
  Serious: No
  Sender: ROCHE
  Company Number: DE-ROCHE-3543424

PATIENT
  Age: 1 Year
  Sex: Female
  Weight: 9.8 kg

DRUGS (2)
  1. EVRYSDI [Suspect]
     Active Substance: RISDIPLAM
     Indication: Spinal muscular atrophy
     Dosage: ON 20/MAR/2024, SHE RECEIVED MOST RECENT DOSE OF RISDIPLAM
     Route: 048
     Dates: start: 20221229
  2. CHOLECALCIFEROL [Concomitant]
     Active Substance: CHOLECALCIFEROL
     Dates: start: 202207

REACTIONS (1)
  - Rubella [Recovered/Resolved]

NARRATIVE: CASE EVENT DATE: 20240201
